FAERS Safety Report 23083407 (Version 1)
Quarter: 2023Q4

REPORT INFORMATION
  Report Type: Spontaneous
  Country: US (occurrence: None)
  Receive Date: 20231017
  Receipt Date: 20231017
  Transmission Date: 20240110
  Serious: Yes (Hospitalization)
  Sender: FDA-Public Use
  Company Number: None

PATIENT
  Age: 73 Year
  Sex: Male
  Weight: 98 kg

DRUGS (1)
  1. WARFARIN SODIUM [Suspect]
     Active Substance: WARFARIN SODIUM
     Dates: start: 20110210

REACTIONS (8)
  - Anticoagulation drug level above therapeutic [None]
  - Therapy interrupted [None]
  - Haemorrhage [None]
  - Anaemia [None]
  - Viral infection [None]
  - Transfusion [None]
  - Transfusion [None]
  - Pneumonia [None]

NARRATIVE: CASE EVENT DATE: 20230202
